FAERS Safety Report 5683833-3 (Version None)
Quarter: 2008Q1

REPORT INFORMATION
  Report Type: 
  Country: None (occurrence: None)
  Receive Date: 20080328
  Receipt Date: 20080324
  Transmission Date: 20080703
  Serious: Yes (Other)
  Sender: FDA-Public Use
  Company Number: US-ASTRAZENECA-2008UW05936

PATIENT
  Age: 50 Year
  Sex: Female

DRUGS (4)
  1. SEROQUEL [Suspect]
     Route: 048
  2. SEROQUEL [Suspect]
     Dosage: INCREASED
     Route: 048
  3. SEROQUEL [Suspect]
     Dosage: DECREASED
     Route: 048
  4. DEPAKOTE [Concomitant]

REACTIONS (3)
  - DELIRIUM [None]
  - HYPERSEXUALITY [None]
  - MANIA [None]
